FAERS Safety Report 17822538 (Version 3)
Quarter: 2020Q3

REPORT INFORMATION
  Report Type: Spontaneous
  Country: US (occurrence: US)
  Receive Date: 20200526
  Receipt Date: 20200814
  Transmission Date: 20201102
  Serious: No
  Sender: FDA-Public Use
  Company Number: US-BAUSCH-BL-2020-014974

PATIENT
  Age: 72 Year
  Sex: Female
  Weight: 46.76 kg

DRUGS (3)
  1. LUMIFY [Suspect]
     Active Substance: BRIMONIDINE TARTRATE
     Indication: EYE IRRITATION
     Dosage: NEW BOTTLE?IN EACH EYE
     Route: 047
     Dates: start: 202003, end: 202005
  2. LUMIFY [Suspect]
     Active Substance: BRIMONIDINE TARTRATE
     Dosage: IN EACH EYE
     Route: 047
     Dates: start: 202005
  3. LUMIFY [Suspect]
     Active Substance: BRIMONIDINE TARTRATE
     Indication: OCULAR HYPERAEMIA
     Dosage: STARTED: ALMOST A YEAR, IN EACH EYE
     Route: 047
     Dates: start: 2019, end: 202003

REACTIONS (3)
  - Ocular hyperaemia [Recovered/Resolved]
  - Product quality issue [Unknown]
  - Eye pain [Recovered/Resolved]

NARRATIVE: CASE EVENT DATE: 202003
